FAERS Safety Report 14343567 (Version 1)
Quarter: 2017Q4

REPORT INFORMATION
  Report Type: Spontaneous
  Country: US (occurrence: US)
  Receive Date: 20171229
  Receipt Date: 20171229
  Transmission Date: 20180321
  Serious: No
  Sender: FDA-Public Use
  Company Number: None

PATIENT
  Age: 51 Year
  Sex: Female

DRUGS (1)
  1. DAPTOMYCIN 500 MG HOSPIRA [Suspect]
     Active Substance: DAPTOMYCIN
     Indication: CELLULITIS
     Dosage: 500MG Q 24 HR IVP
     Dates: start: 20171210

REACTIONS (2)
  - Tremor [None]
  - Chills [None]

NARRATIVE: CASE EVENT DATE: 20171211
